FAERS Safety Report 8551051 (Version 2)
Quarter: 2012Q4

REPORT INFORMATION
  Report Type: 
  Country: US (occurrence: US)
  Receive Date: 20120508
  Receipt Date: 20120907
  Transmission Date: 20130627
  Serious: Yes (Hospitalization)
  Sender: FDA-Public Use
  Company Number: US-BAYER-2012-042934

PATIENT
  Age: 21 Year
  Sex: Female
  Weight: 81.63 kg

DRUGS (5)
  1. YASMIN [Suspect]
     Indication: CONTRACEPTION
     Dosage: UNK
     Dates: start: 20060516, end: 200807
  2. OCELLA [Suspect]
     Indication: CONTRACEPTION
     Dosage: UNK
     Dates: start: 20080713, end: 200911
  3. AMOXICILLIN W/CLAVULANIC ACID [Concomitant]
     Dosage: 875-125 mg
  4. APRI [Concomitant]
     Dosage: UNK
     Dates: start: 200911, end: 201009
  5. ANALGESICS [Concomitant]

REACTIONS (5)
  - Cholelithiasis [None]
  - Cholecystitis chronic [None]
  - Injury [None]
  - Pain [None]
  - Abdominal pain upper [None]
